FAERS Safety Report 24797101 (Version 1)
Quarter: 2025Q1

REPORT INFORMATION
  Report Type: Spontaneous
  Country: CN (occurrence: CN)
  Receive Date: 20250101
  Receipt Date: 20250101
  Transmission Date: 20250409
  Serious: Yes (Other)
  Sender: BEIGENE
  Company Number: CN-BEIGENE-BGN-2024-020820

PATIENT

DRUGS (2)
  1. TISLELIZUMAB [Suspect]
     Active Substance: TISLELIZUMAB
     Indication: Squamous cell carcinoma of lung
     Dates: start: 20231102, end: 20240130
  2. PACLITAXEL [Concomitant]
     Active Substance: PACLITAXEL
     Indication: Squamous cell carcinoma of lung
     Dates: start: 20231102, end: 20240130

REACTIONS (1)
  - Pemphigoid [Recovering/Resolving]
